FAERS Safety Report 26046321 (Version 1)
Quarter: 2025Q4

REPORT INFORMATION
  Report Type: Spontaneous
  Country: EU (occurrence: EU)
  Receive Date: 20251114
  Receipt Date: 20251114
  Transmission Date: 20260117
  Serious: Yes (Life-Threatening)
  Sender: TEVA
  Company Number: None

PATIENT
  Age: 58 Year
  Sex: Male

DRUGS (5)
  1. ZOPICLONE [Suspect]
     Active Substance: ZOPICLONE
     Indication: Poisoning deliberate
     Dosage: TIME INTERVAL: TOTAL
     Route: 048
     Dates: start: 20250821
  2. TAMSULOSIN [Suspect]
     Active Substance: TAMSULOSIN
     Indication: Poisoning deliberate
     Dosage: TIME INTERVAL: TOTAL: TAMSULOSIN HYDROCHLORIDE
     Route: 048
     Dates: start: 20250821
  3. ALPRAZOLAM [Suspect]
     Active Substance: ALPRAZOLAM
     Indication: Poisoning deliberate
     Dosage: TIME INTERVAL: TOTAL
     Route: 048
     Dates: start: 20250821
  4. LORAZEPAM [Suspect]
     Active Substance: LORAZEPAM
     Indication: Poisoning deliberate
     Dosage: TIME INTERVAL: TOTAL
     Route: 048
     Dates: start: 20250821
  5. BROMAZEPAM [Suspect]
     Active Substance: BROMAZEPAM
     Indication: Poisoning deliberate
     Dosage: TIME INTERVAL: TOTAL
     Route: 048
     Dates: start: 20250821

REACTIONS (2)
  - Poisoning deliberate [Recovered/Resolved]
  - Depressed level of consciousness [Recovered/Resolved]

NARRATIVE: CASE EVENT DATE: 20250821
